FAERS Safety Report 6274157-4 (Version None)
Quarter: 2009Q3

REPORT INFORMATION
  Report Type: 
  Country: None (occurrence: None)
  Receive Date: 20090716
  Receipt Date: 20090707
  Transmission Date: 20100115
  Serious: Yes (Death, Life-Threatening, Hospitalization)
  Sender: FDA-Public Use
  Company Number: CLOF-1000588

PATIENT
  Age: 3 Year
  Sex: Male

DRUGS (9)
  1. EVOLTRA (CLOFARABINE) SOLUTION FOR INFUSION [Suspect]
     Indication: ACUTE MYELOID LEUKAEMIA
     Dosage: 40 MG/M2, QDX5, INTRAVENOUS
     Route: 042
     Dates: start: 20090514, end: 20090518
  2. CYCLOPHOSPHAMIDE [Suspect]
     Indication: ACUTE MYELOID LEUKAEMIA
     Dosage: 340 MG/M2, QDX5, INTRAVENOUS
     Route: 042
     Dates: start: 20090514, end: 20090518
  3. ETOPOSIDE [Suspect]
     Indication: ACUTE MYELOID LEUKAEMIA
     Dosage: 100 MG/M2, QDX5, INTRAVENOUS
     Route: 042
     Dates: start: 20090514, end: 20090518
  4. CEFTAZIDIME PENTAHYDRATE [Concomitant]
  5. VANCOMYCINE PCH (VANCOMYCIN HYDROCHLORIDE) [Concomitant]
  6. ZOVIRAX [Concomitant]
  7. ZOFRAN [Concomitant]
  8. ALIZAPRIDE (ALIZAPRIDE) [Concomitant]
  9. NEXIUM [Concomitant]

REACTIONS (15)
  - ACUTE PULMONARY OEDEMA [None]
  - ALANINE AMINOTRANSFERASE INCREASED [None]
  - ASCITES [None]
  - ASPARTATE AMINOTRANSFERASE INCREASED [None]
  - BILIRUBIN CONJUGATED INCREASED [None]
  - BLOOD BILIRUBIN INCREASED [None]
  - BLOOD CREATININE DECREASED [None]
  - BLOOD LACTATE DEHYDROGENASE INCREASED [None]
  - GAMMA-GLUTAMYLTRANSFERASE ABNORMAL [None]
  - HEPATOMEGALY [None]
  - PROTHROMBIN TIME PROLONGED [None]
  - PULMONARY HYPERTENSION [None]
  - SPLENOMEGALY [None]
  - VENOOCCLUSIVE DISEASE [None]
  - WEIGHT INCREASED [None]
